FAERS Safety Report 4798206-5 (Version None)
Quarter: 2005Q4

REPORT INFORMATION
  Report Type: 
  Country: None (occurrence: None)
  Receive Date: 20051014
  Receipt Date: 20051003
  Transmission Date: 20060501
  Serious: Yes (Hospitalization)
  Sender: FDA-Public Use
  Company Number: US-SOLVAY-00205003095

PATIENT
  Age: 44 Year
  Sex: Male
  Weight: 75.5 kg

DRUGS (13)
  1. ANDROGEL [Suspect]
     Indication: HIV WASTING SYNDROME
     Dosage: DAILY DOSE: 5 GRAM(S)
     Route: 062
     Dates: start: 20010101
  2. SEROSTIM [Concomitant]
     Indication: HIV WASTING SYNDROME
     Dosage: DAILY DOSE: 6 MILLIGRAM(S)
     Route: 058
     Dates: start: 20041001
  3. EPIVIR [Concomitant]
     Indication: HIV INFECTION
     Dosage: DAILY DOSE: 300 MILLIGRAM(S)
     Route: 048
     Dates: start: 20040301
  4. ACYCLOVIR [Concomitant]
     Indication: HIV INFECTION
     Dosage: DAILY DOSE: 800 MILLIGRAM(S)
     Route: 048
     Dates: start: 19990101
  5. REYATAZ [Concomitant]
     Indication: HIV INFECTION
     Dosage: DAILY DOSE: 150 MILLIGRAM(S)
     Route: 048
     Dates: start: 20040301
  6. INVIRASE [Concomitant]
     Indication: HIV INFECTION
     Dosage: DAILY DOSE: 1600 MILLIGRAM(S)
     Route: 048
     Dates: start: 20040301
  7. NORVIR [Concomitant]
     Indication: HIV INFECTION
     Dosage: DAILY DOSE: 100 MILLIGRAM(S)
     Route: 048
     Dates: start: 20040301
  8. ZITHROMAX [Concomitant]
     Indication: INFECTION PROPHYLAXIS
     Dosage: DAILY DOSE:  UNKNOWN
     Route: 048
     Dates: start: 20040301
  9. FLUCONAZOLE [Concomitant]
     Indication: INFECTION PROPHYLAXIS
     Dosage: DAILY DOSE: 100 MILLIGRAM(S)
     Route: 048
     Dates: start: 20040301
  10. DAPSONE [Concomitant]
     Indication: INFECTION PROPHYLAXIS
     Dosage: DAILY DOSE:  UNKNOWN
     Route: 048
     Dates: start: 20040301
  11. ASPIRIN [Concomitant]
     Indication: ISCHAEMIC HEART DISEASE PROPHYLAXIS
     Dosage: DAILY DOSE: 81 MILLIGRAM(S)
     Route: 048
     Dates: start: 20020101
  12. QUINAPRIL [Concomitant]
     Indication: HYPERTENSION
     Dosage: DAILY DOSE: 20 MILLIGRAM(S)
     Route: 048
     Dates: start: 20020601
  13. METOPROLOL [Concomitant]
     Indication: HYPERTENSION
     Dosage: DAILY DOSE: 50 MILLIGRAM(S)
     Route: 048
     Dates: start: 20020601

REACTIONS (4)
  - ENERGY INCREASED [None]
  - MYOCARDIAL INFARCTION [None]
  - T-LYMPHOCYTE COUNT INCREASED [None]
  - WEIGHT INCREASED [None]
